FAERS Safety Report 7611503-0 (Version None)
Quarter: 2011Q3

REPORT INFORMATION
  Report Type: 
  Country: None (occurrence: None)
  Receive Date: 20110706
  Receipt Date: 20100818
  Transmission Date: 20111222
  Serious: Yes (Other)
  Sender: FDA-Public Use
  Company Number: 2010-04425

PATIENT
  Sex: Female

DRUGS (4)
  1. SYNTHROID [Concomitant]
  2. VITAMIN TAB [Concomitant]
  3. IMOGAM RABIES-HT [Suspect]
     Indication: ACCIDENTAL EXPOSURE
     Dates: start: 20100704, end: 20100704
  4. IMOVAX RABIES [Suspect]
     Indication: ACCIDENTAL EXPOSURE
     Dates: start: 20100704, end: 20100704

REACTIONS (6)
  - LACRIMATION INCREASED [None]
  - FATIGUE [None]
  - DIARRHOEA [None]
  - ARTHRALGIA [None]
  - EYE IRRITATION [None]
  - BACK PAIN [None]
